FAERS Safety Report 21023499 (Version 5)
Quarter: 2023Q2

REPORT INFORMATION
  Report Type: Spontaneous
  Country: US (occurrence: US)
  Receive Date: 20220629
  Receipt Date: 20230417
  Transmission Date: 20230722
  Serious: Yes (Hospitalization, Other)
  Sender: FDA-Public Use
  Company Number: US-Blueprint Medicines Corporation-SP-US-2022-001945

PATIENT
  Age: 74 Year
  Sex: Female

DRUGS (3)
  1. AYVAKIT [Suspect]
     Active Substance: AVAPRITINIB
     Indication: Gastrointestinal stromal tumour
     Route: 048
     Dates: start: 20220414
  2. AYVAKIT [Suspect]
     Active Substance: AVAPRITINIB
     Route: 048
     Dates: start: 20220414
  3. AYVAKIT [Suspect]
     Active Substance: AVAPRITINIB
     Route: 048
     Dates: start: 20220414

REACTIONS (7)
  - Large intestine infection [Recovered/Resolved]
  - Tumour rupture [Not Recovered/Not Resolved]
  - Abscess [Not Recovered/Not Resolved]
  - Infected neoplasm [Not Recovered/Not Resolved]
  - Peripheral swelling [Not Recovered/Not Resolved]
  - Swelling face [Not Recovered/Not Resolved]
  - Red blood cell count decreased [Recovered/Resolved]

NARRATIVE: CASE EVENT DATE: 20220414
